FAERS Safety Report 9322313 (Version 2)
Quarter: 2013Q2

REPORT INFORMATION
  Report Type: Report from Study
  Country: US (occurrence: US)
  Receive Date: 20130531
  Receipt Date: 20130620
  Transmission Date: 20140414
  Serious: Yes (Hospitalization)
  Sender: FDA-Public Use
  Company Number: US-GLAXOSMITHKLINE-A1024935A

PATIENT
  Age: 83 Year
  Sex: Female
  Weight: 87.8 kg

DRUGS (10)
  1. OFATUMUMAB [Suspect]
     Indication: DIFFUSE LARGE B-CELL LYMPHOMA
     Route: 042
     Dates: start: 20130320
  2. BENDAMUSTINE [Suspect]
     Indication: DIFFUSE LARGE B-CELL LYMPHOMA
     Route: 042
     Dates: start: 20130320
  3. ENSURE [Suspect]
  4. ASPIRIN [Concomitant]
     Indication: PROPHYLAXIS
     Dosage: 81MG PER DAY
     Dates: start: 19840101
  5. COZAAR [Concomitant]
     Indication: HYPERTENSION
     Dosage: 50MG TWICE PER DAY
     Dates: start: 19830101, end: 20130517
  6. HCTZ [Concomitant]
     Indication: HYPERTENSION
     Dosage: 50MG PER DAY
     Dates: start: 19830101, end: 20130517
  7. LIPITOR [Concomitant]
     Indication: HYPERLIPIDAEMIA
     Dosage: 10MG PER DAY
     Dates: start: 19980101
  8. NORVASC [Concomitant]
     Indication: HYPERTENSION
     Dosage: 2.5MG PER DAY
     Dates: start: 19870101
  9. OSCAL 500 + D [Concomitant]
     Indication: SUPPLEMENTATION THERAPY
     Dates: start: 19980101
  10. TYLENOL ES [Concomitant]
     Indication: ARTHRALGIA
     Dosage: 1000MG TWICE PER DAY
     Dates: start: 20130327

REACTIONS (1)
  - Dehydration [Recovered/Resolved]
